FAERS Safety Report 8574918-2 (Version None)
Quarter: 2012Q3

REPORT INFORMATION
  Report Type: 
  Country: None (occurrence: None)
  Receive Date: 20120807
  Receipt Date: 20120724
  Transmission Date: 20120928
  Serious: No
  Sender: FDA-Public Use
  Company Number: US-009507513-1207USA010667

PATIENT

DRUGS (4)
  1. RIBAVIRIN [Suspect]
     Dosage: 1200, QD
  2. PEGASYS [Suspect]
  3. PREDNISONE [Concomitant]
     Dosage: 5 MG, UNK
  4. VICTRELIS [Suspect]
     Dosage: 200 MG, UNK

REACTIONS (5)
  - DECREASED APPETITE [None]
  - PALPITATIONS [None]
  - NAUSEA [None]
  - DYSPNOEA [None]
  - DRY MOUTH [None]
